FAERS Safety Report 7633990-4 (Version None)
Quarter: 2011Q3

REPORT INFORMATION
  Report Type: 
  Country: None (occurrence: None)
  Receive Date: 20110714
  Receipt Date: 20110110
  Transmission Date: 20111222
  Serious: Yes (Life-Threatening, Hospitalization)
  Sender: FDA-Public Use
  Company Number: 2011SP001224

PATIENT
  Age: 50 Year
  Sex: Male

DRUGS (3)
  1. INTEGRILIN [Suspect]
     Indication: THROMBOSIS PROPHYLAXIS
     Dosage: IV
     Route: 042
     Dates: start: 20110107, end: 20110107
  2. HEPARIN [Suspect]
     Indication: PRODUCT USED FOR UNKNOWN INDICATION
  3. PLAVIX [Suspect]
     Indication: PRODUCT USED FOR UNKNOWN INDICATION

REACTIONS (2)
  - THROMBOCYTOPENIA [None]
  - HAEMOPTYSIS [None]
